FAERS Safety Report 5635951-3 (Version None)
Quarter: 2008Q1

REPORT INFORMATION
  Report Type: 
  Country: None (occurrence: None)
  Receive Date: 20080224
  Receipt Date: 20080214
  Transmission Date: 20080703
  Serious: Yes (Other)
  Sender: FDA-Public Use
  Company Number: PHHY2008BR01778

PATIENT
  Age: 63 Year
  Sex: Female

DRUGS (2)
  1. NAPRIX [Concomitant]
     Indication: HYPERTENSION
  2. GALVUS MET [Suspect]
     Dosage: 100/850 MG/DAY
     Dates: start: 20070901, end: 20071101

REACTIONS (4)
  - DRUG INEFFECTIVE [None]
  - GLYCOSYLATED HAEMOGLOBIN INCREASED [None]
  - HYPERGLYCAEMIA [None]
  - VOMITING [None]
